FAERS Safety Report 9859865 (Version 1)
Quarter: 2014Q1

REPORT INFORMATION
  Report Type: Spontaneous
  Country: IT (occurrence: IT)
  Receive Date: 20140131
  Receipt Date: 20140131
  Transmission Date: 20141002
  Serious: Yes (Other)
  Sender: FDA-Public Use
  Company Number: IT-ACTAVIS-2014-00938

PATIENT
  Age: 42 Year
  Sex: Female

DRUGS (2)
  1. CARBAMAZEPINE (UNKNOWN) [Suspect]
     Indication: NEURALGIA
     Dosage: 300 MG, Q8H
     Route: 065
     Dates: start: 20110727, end: 20110814
  2. CARBAMAZEPINE (UNKNOWN) [Suspect]
     Dosage: 200 MG, Q8H
     Route: 065
     Dates: start: 20110722, end: 20110727

REACTIONS (3)
  - Ataxia [Unknown]
  - Diplopia [Unknown]
  - Anticonvulsant drug level increased [Unknown]
